FAERS Safety Report 9356232 (Version 2)
Quarter: 2013Q2

REPORT INFORMATION
  Report Type: Spontaneous
  Country: US (occurrence: US)
  Receive Date: 20130619
  Receipt Date: 20130626
  Transmission Date: 20140414
  Serious: Yes (Hospitalization, Other)
  Sender: FDA-Public Use
  Company Number: US-TEVA-413093USA

PATIENT
  Age: 71 Year
  Sex: Female

DRUGS (2)
  1. AZITHROMYCIN [Suspect]
     Indication: INFLUENZA
     Dates: start: 201301
  2. ASPIRIN [Concomitant]

REACTIONS (7)
  - Cardiac disorder [Not Recovered/Not Resolved]
  - Atrial fibrillation [Not Recovered/Not Resolved]
  - Heart rate increased [Unknown]
  - Arterial disorder [Unknown]
  - Dyspnoea [Unknown]
  - Myocardial infarction [Unknown]
  - Palpitations [Unknown]
